FAERS Safety Report 22884212 (Version 25)
Quarter: 2025Q1

REPORT INFORMATION
  Report Type: Report from Study
  Country: GB (occurrence: GB)
  Receive Date: 20230830
  Receipt Date: 20250122
  Transmission Date: 20250408
  Serious: Yes (Hospitalization, Other)
  Sender: ABBVIE
  Company Number: GB-ABBVIE-5374369

PATIENT
  Age: 67 Year
  Sex: Female

DRUGS (33)
  1. CARBIDOPA\LEVODOPA [Suspect]
     Active Substance: CARBIDOPA\LEVODOPA
     Indication: Parkinson^s disease
     Route: 050
  2. CARBIDOPA\LEVODOPA [Suspect]
     Active Substance: CARBIDOPA\LEVODOPA
     Route: 050
     Dates: start: 202308, end: 202308
  3. CARBIDOPA\LEVODOPA [Suspect]
     Active Substance: CARBIDOPA\LEVODOPA
     Route: 050
  4. CARBIDOPA\LEVODOPA [Suspect]
     Active Substance: CARBIDOPA\LEVODOPA
     Route: 050
  5. CARBIDOPA\LEVODOPA [Suspect]
     Active Substance: CARBIDOPA\LEVODOPA
     Route: 050
  6. CARBIDOPA\LEVODOPA [Suspect]
     Active Substance: CARBIDOPA\LEVODOPA
     Route: 050
  7. CARBIDOPA\LEVODOPA [Suspect]
     Active Substance: CARBIDOPA\LEVODOPA
     Route: 050
     Dates: start: 20240518
  8. CARBIDOPA\LEVODOPA [Suspect]
     Active Substance: CARBIDOPA\LEVODOPA
     Route: 050
  9. CARBIDOPA\LEVODOPA [Suspect]
     Active Substance: CARBIDOPA\LEVODOPA
     Route: 050
  10. FLUDROCORTISONE [Concomitant]
     Active Substance: FLUDROCORTISONE
     Indication: Parkinson^s disease
     Route: 048
  11. BENSERAZIDE HYDROCHLORIDE\LEVODOPA [Concomitant]
     Active Substance: BENSERAZIDE HYDROCHLORIDE\LEVODOPA
     Indication: Parkinson^s disease
     Route: 065
  12. BENSERAZIDE HYDROCHLORIDE\LEVODOPA [Concomitant]
     Active Substance: BENSERAZIDE HYDROCHLORIDE\LEVODOPA
     Indication: Parkinson^s disease
  13. LACTULOSE [Concomitant]
     Active Substance: LACTULOSE
     Indication: Product used for unknown indication
  14. CYCLIZINE [Concomitant]
     Active Substance: CYCLIZINE
     Indication: Product used for unknown indication
     Route: 065
  15. LEVODOPA [Concomitant]
     Active Substance: LEVODOPA
     Indication: Product used for unknown indication
  16. POLYETHYLENE GLYCOL 3350\POTASSIUM CHLORIDE\SODIUM BICARBONATE\SODIUM [Concomitant]
     Active Substance: POLYETHYLENE GLYCOL 3350\POTASSIUM CHLORIDE\SODIUM BICARBONATE\SODIUM CHLORIDE
     Indication: Product used for unknown indication
  17. CLONAZEPAM [Concomitant]
     Active Substance: CLONAZEPAM
     Indication: Product used for unknown indication
     Route: 065
  18. ROTIGOTINE [Concomitant]
     Active Substance: ROTIGOTINE
     Indication: Product used for unknown indication
  19. ROTIGOTINE [Concomitant]
     Active Substance: ROTIGOTINE
     Indication: Product used for unknown indication
  20. ROTIGOTINE [Concomitant]
     Active Substance: ROTIGOTINE
     Indication: Product used for unknown indication
  21. ROTIGOTINE [Concomitant]
     Active Substance: ROTIGOTINE
     Indication: Product used for unknown indication
  22. POLYETHYLENE GLYCOL 3350\POTASSIUM CHLORIDE\SODIUM BICARBONATE\SODIUM [Concomitant]
     Active Substance: POLYETHYLENE GLYCOL 3350\POTASSIUM CHLORIDE\SODIUM BICARBONATE\SODIUM CHLORIDE
     Indication: Product used for unknown indication
     Route: 065
  23. MIRABEGRON [Concomitant]
     Active Substance: MIRABEGRON
     Indication: Product used for unknown indication
     Dosage: MIRABEGRON MR
  24. CLOPIDOGREL [Concomitant]
     Active Substance: CLOPIDOGREL BISULFATE
     Indication: Product used for unknown indication
     Route: 065
  25. QUININE SULFATE [Concomitant]
     Active Substance: QUININE SULFATE
     Indication: Product used for unknown indication
  26. DULOXETINE [Concomitant]
     Active Substance: DULOXETINE
     Indication: Product used for unknown indication
     Route: 065
  27. ATORVASTATIN [Concomitant]
     Active Substance: ATORVASTATIN
     Indication: Product used for unknown indication
     Route: 065
  28. MORPHINE SULFATE [Concomitant]
     Active Substance: MORPHINE SULFATE
     Indication: Product used for unknown indication
  29. ACETAMINOPHEN\CODEINE PHOSPHATE [Concomitant]
     Active Substance: ACETAMINOPHEN\CODEINE PHOSPHATE
     Indication: Analgesic therapy
  30. PREGABALIN [Concomitant]
     Active Substance: PREGABALIN
     Indication: Product used for unknown indication
  31. CETIRIZINE [Concomitant]
     Active Substance: CETIRIZINE HYDROCHLORIDE
     Indication: Product used for unknown indication
     Route: 065
  32. LANSOPRAZOLE [Concomitant]
     Active Substance: LANSOPRAZOLE
     Indication: Product used for unknown indication
  33. LIDOCAINE [Concomitant]
     Active Substance: LIDOCAINE
     Indication: Product used for unknown indication

REACTIONS (84)
  - Bladder cancer [Not Recovered/Not Resolved]
  - Stoma site erythema [Not Recovered/Not Resolved]
  - Feeling abnormal [Recovered/Resolved]
  - Feeling abnormal [Unknown]
  - Balance disorder [Unknown]
  - Dyskinesia [Not Recovered/Not Resolved]
  - Medical device removal [Unknown]
  - Hypophagia [Unknown]
  - Abdominal distension [Recovered/Resolved]
  - Depressed mood [Not Recovered/Not Resolved]
  - Device issue [Recovered/Resolved]
  - Stoma site rash [Not Recovered/Not Resolved]
  - Dry mouth [Unknown]
  - Depression [Not Recovered/Not Resolved]
  - Stoma site induration [Unknown]
  - Parkinson^s disease [Not Recovered/Not Resolved]
  - Tooth extraction [Unknown]
  - Gastrointestinal disorder [Unknown]
  - Adverse drug reaction [Unknown]
  - Defaecation disorder [Recovering/Resolving]
  - Hypersomnia [Unknown]
  - Memory impairment [Not Recovered/Not Resolved]
  - Device connection issue [Recovered/Resolved]
  - Therapeutic product effect incomplete [Unknown]
  - Fungal infection [Unknown]
  - Device use error [Not Recovered/Not Resolved]
  - Device occlusion [Unknown]
  - Vomiting [Unknown]
  - Stoma site discharge [Recovered/Resolved]
  - Gait disturbance [Unknown]
  - Abnormal dreams [Not Recovered/Not Resolved]
  - Hallucination [Not Recovered/Not Resolved]
  - Constipation [Recovered/Resolved]
  - Unevaluable event [Not Recovered/Not Resolved]
  - Fatigue [Not Recovered/Not Resolved]
  - Hyperhidrosis [Not Recovered/Not Resolved]
  - Fall [Recovered/Resolved]
  - Urinary incontinence [Not Recovered/Not Resolved]
  - Lethargy [Unknown]
  - Device connection issue [Recovered/Resolved]
  - Bradykinesia [Unknown]
  - Stoma site pain [Not Recovered/Not Resolved]
  - Frustration tolerance decreased [Not Recovered/Not Resolved]
  - Rash erythematous [Not Recovered/Not Resolved]
  - Abdominal distension [Recovered/Resolved]
  - Abdominal pain upper [Unknown]
  - Oral pain [Unknown]
  - Device dislocation [Recovered/Resolved]
  - Posture abnormal [Unknown]
  - On and off phenomenon [Unknown]
  - Urinary tract disorder [Recovered/Resolved]
  - Confusional state [Unknown]
  - Headache [Unknown]
  - Weight decreased [Recovered/Resolved]
  - Fibromyalgia [Unknown]
  - Nausea [Unknown]
  - Contusion [Unknown]
  - Abdominal mass [Not Recovered/Not Resolved]
  - Freezing phenomenon [Not Recovered/Not Resolved]
  - Pain [Unknown]
  - Muscle rigidity [Not Recovered/Not Resolved]
  - General physical health deterioration [Unknown]
  - Pollakiuria [Not Recovered/Not Resolved]
  - Fall [Recovered/Resolved]
  - Micturition urgency [Unknown]
  - Psychiatric symptom [Unknown]
  - Fall [Not Recovered/Not Resolved]
  - Memory impairment [Unknown]
  - Wheelchair user [Unknown]
  - Mobility decreased [Unknown]
  - Dystonia [Not Recovered/Not Resolved]
  - Constipation [Not Recovered/Not Resolved]
  - Dyskinesia [Recovering/Resolving]
  - Stoma site discharge [Recovered/Resolved]
  - Stoma site erythema [Unknown]
  - Stoma site oedema [Unknown]
  - Stoma site discharge [Not Recovered/Not Resolved]
  - Weight decreased [Unknown]
  - Somnolence [Unknown]
  - Device issue [Unknown]
  - Asthenia [Unknown]
  - Abdominal pain [Not Recovered/Not Resolved]
  - Abdominal distension [Not Recovered/Not Resolved]
  - Stoma site haemorrhage [Not Recovered/Not Resolved]

NARRATIVE: CASE EVENT DATE: 20230101
